FAERS Safety Report 9882526 (Version 1)
Quarter: 2014Q1

REPORT INFORMATION
  Report Type: Report from Study
  Country: US (occurrence: US)
  Receive Date: 20140207
  Receipt Date: 20140207
  Transmission Date: 20141002
  Serious: Yes (Other)
  Sender: FDA-Public Use
  Company Number: US-ABBVIE-14P-163-1197584-00

PATIENT
  Age: 49 Year
  Sex: Female
  Weight: 69.01 kg

DRUGS (5)
  1. HUMIRA [Suspect]
     Indication: ANKYLOSING SPONDYLITIS
     Dates: start: 200904
  2. SINGULAIR [Concomitant]
     Indication: PRODUCT USED FOR UNKNOWN INDICATION
  3. ZYRTEC [Concomitant]
     Indication: PRODUCT USED FOR UNKNOWN INDICATION
  4. PROMETHAZINE WITH CODEINE [Concomitant]
     Indication: BRONCHITIS
     Dates: start: 201401, end: 201401
  5. ACIPHEX [Concomitant]
     Indication: GASTROOESOPHAGEAL REFLUX DISEASE

REACTIONS (7)
  - Osteoarthritis [Recovered/Resolved]
  - Meniscus injury [Recovered/Resolved]
  - Arthralgia [Recovered/Resolved]
  - Oropharyngeal pain [Not Recovered/Not Resolved]
  - Cough [Not Recovered/Not Resolved]
  - Bronchitis [Recovered/Resolved]
  - Joint swelling [Not Recovered/Not Resolved]
